FAERS Safety Report 15643315 (Version 1)
Quarter: 2018Q4

REPORT INFORMATION
  Report Type: Spontaneous
  Country: ES (occurrence: ES)
  Receive Date: 20181121
  Receipt Date: 20181121
  Transmission Date: 20190205
  Serious: Yes (Hospitalization)
  Sender: FDA-Public Use
  Company Number: PHHY2018ES159530

PATIENT
  Age: 29 Year
  Sex: Female
  Weight: 75 kg

DRUGS (3)
  1. YASMINELLE [Concomitant]
     Active Substance: DROSPIRENONE
     Indication: MENORRHAGIA
     Dosage: 1 DF, Q24H
     Route: 048
     Dates: start: 20170428
  2. SANDIMMUN NEORAL [Suspect]
     Active Substance: CYCLOSPORINE
     Indication: APLASTIC ANAEMIA
     Dosage: UNK
     Route: 048
  3. NOXAFIL [Concomitant]
     Active Substance: POSACONAZOLE
     Indication: ANTIFUNGAL PROPHYLAXIS
     Dosage: 300 MG, Q24H
     Route: 048

REACTIONS (3)
  - Acute kidney injury [Recovering/Resolving]
  - Hypoaldosteronism [Recovering/Resolving]
  - Renal tubular dysfunction [Recovering/Resolving]

NARRATIVE: CASE EVENT DATE: 20170622
